FAERS Safety Report 8728263 (Version 5)
Quarter: 2012Q4

REPORT INFORMATION
  Report Type: 
  Country: US (occurrence: US)
  Receive Date: 20120817
  Receipt Date: 20121019
  Transmission Date: 20130627
  Serious: Yes (Hospitalization, Other)
  Sender: FDA-Public Use
  Company Number: US-PFIZER INC-2012197591

PATIENT
  Age: 55 Year
  Sex: Female
  Weight: 62 kg

DRUGS (10)
  1. SUTENT [Suspect]
     Indication: METASTATIC RENAL CELL CARCINOMA
     Dosage: 50 mg, 1x/day
     Route: 048
     Dates: start: 2012, end: 2012
  2. SUTENT [Suspect]
     Indication: LUNG NEOPLASM MALIGNANT
     Dosage: 50 mg, 1x/day
     Route: 048
     Dates: start: 20120801, end: 20120815
  3. SUTENT [Suspect]
     Dosage: UNK
     Dates: end: 20121011
  4. AMLODIPINE [Concomitant]
     Indication: HYPERTENSION
     Dosage: 5 mg, UNK
  5. COUMADINE [Concomitant]
     Dosage: UNK
  6. WARFARIN [Concomitant]
     Dosage: UNK
  7. ONDANSETRON [Concomitant]
     Dosage: UNK, as needed
  8. VICODIN [Concomitant]
     Dosage: 5/325, as needed
  9. MIRALAX [Concomitant]
     Indication: BOWEL MOVEMENT IRREGULARITY
     Dosage: UNK
  10. MORPHINE [Concomitant]
     Dosage: 15 mg, as needed

REACTIONS (27)
  - Haematochezia [Not Recovered/Not Resolved]
  - Rectal haemorrhage [Not Recovered/Not Resolved]
  - Anal haemorrhage [Unknown]
  - Haemoptysis [Not Recovered/Not Resolved]
  - Haematuria [Not Recovered/Not Resolved]
  - Blood urine present [Not Recovered/Not Resolved]
  - Pyrexia [Unknown]
  - White blood cell count increased [Unknown]
  - Blood pressure increased [Unknown]
  - Yellow skin [Not Recovered/Not Resolved]
  - Cough [Not Recovered/Not Resolved]
  - Constipation [Not Recovered/Not Resolved]
  - Vomiting [Not Recovered/Not Resolved]
  - Diarrhoea [Unknown]
  - Fatigue [Unknown]
  - Asthenia [Unknown]
  - Hypersomnia [Unknown]
  - Decreased appetite [Unknown]
  - Weight decreased [Unknown]
  - Abdominal pain lower [Unknown]
  - Pain in extremity [Unknown]
  - Tremor [Unknown]
  - Epistaxis [Unknown]
  - Nasal dryness [Unknown]
  - Back pain [Unknown]
  - Dysgeusia [Unknown]
  - Blood calcium increased [Unknown]
